FAERS Safety Report 9406985 (Version 2)
Quarter: 2013Q3

REPORT INFORMATION
  Report Type: Spontaneous
  Country: US (occurrence: US)
  Receive Date: 20130718
  Receipt Date: 20130826
  Transmission Date: 20140515
  Serious: No
  Sender: FDA-Public Use
  Company Number: US-PFIZER INC-2013208097

PATIENT
  Age: 50 Year
  Sex: Female
  Weight: 67.12 kg

DRUGS (3)
  1. FLAGYL [Suspect]
     Indication: BACTERIAL INFECTION
     Dosage: 500 MG, 2X/DAY
     Dates: start: 2006, end: 200610
  2. PREMARIN [Concomitant]
     Dosage: UNK
     Route: 067
  3. PREMPRO [Concomitant]
     Dosage: (ESTROGENS CONJUGATED0.45MG/ MEDROXYPROGESTERONE ACETATE 1.5MG), 1X/DAY

REACTIONS (3)
  - Drug hypersensitivity [Unknown]
  - Nausea [Unknown]
  - Vomiting [Unknown]
